FAERS Safety Report 21552373 (Version 2)
Quarter: 2022Q4

REPORT INFORMATION
  Report Type: Spontaneous
  Country: AU (occurrence: AU)
  Receive Date: 20221104
  Receipt Date: 20221108
  Transmission Date: 20230113
  Serious: Yes (Hospitalization, Other)
  Sender: FDA-Public Use
  Company Number: AU-CELLTRION INC.-2022AU018281

PATIENT

DRUGS (2)
  1. INFLIXIMAB [Suspect]
     Active Substance: INFLIXIMAB
     Dosage: 3 X 10MG/KG
  2. AZATHIOPRINE [Suspect]
     Active Substance: AZATHIOPRINE
     Dosage: UNK

REACTIONS (5)
  - Organising pneumonia [Recovering/Resolving]
  - Pyrexia [Recovering/Resolving]
  - Lung infiltration [Recovering/Resolving]
  - Malaise [Recovering/Resolving]
  - Off label use [Unknown]
